FAERS Safety Report 16383101 (Version 1)
Quarter: 2019Q2

REPORT INFORMATION
  Report Type: Spontaneous
  Country: TR (occurrence: TR)
  Receive Date: 20190603
  Receipt Date: 20190603
  Transmission Date: 20190711
  Serious: Yes (Other)
  Sender: FDA-Public Use
  Company Number: TR-AKORN PHARMACEUTICALS-2019AKN01139

PATIENT
  Age: 6 Year
  Sex: Female

DRUGS (3)
  1. CEFTRIAXONE. [Concomitant]
     Active Substance: CEFTRIAXONE
     Indication: CELLULITIS STREPTOCOCCAL
     Dosage: 100 MG/KG/DAY, (2 DOSES)
     Route: 042
  2. IMMUNOGLOBULIN IV [Concomitant]
     Active Substance: HUMAN IMMUNOGLOBULIN G
     Indication: CELLULITIS STREPTOCOCCAL
     Dosage: 1 G/KG/DAY WAS PLANNED FOR TWO CONSECUTIVE DAYS
     Route: 042
  3. CLINDAMYCIN. [Suspect]
     Active Substance: CLINDAMYCIN
     Indication: CELLULITIS STREPTOCOCCAL
     Dosage: 30 MG/KG/DAY, 4 DOSES
     Route: 042

REACTIONS (2)
  - Hypersensitivity [Recovered/Resolved]
  - Hypotension [Recovered/Resolved]
